FAERS Safety Report 9133188 (Version 1)
Quarter: 2013Q1

REPORT INFORMATION
  Report Type: Spontaneous
  Country: DE (occurrence: DE)
  Receive Date: 20130116
  Receipt Date: 20130116
  Transmission Date: 20140127
  Serious: Yes (Other)
  Sender: FDA-Public Use
  Company Number: DE-MERCK-1301DEU004862

PATIENT
  Age: 46 Year
  Sex: Female
  Weight: 57 kg

DRUGS (4)
  1. EZETROL [Suspect]
     Indication: HYPERLIPIDAEMIA
     Dosage: 10 MG, QD
     Route: 048
     Dates: start: 20120619, end: 20121126
  2. METOHEXAL [Concomitant]
     Dosage: 50 MG, DAILY
  3. CLOPIDOGREL [Concomitant]
     Dosage: 75 MG, QD
  4. ENALAPRIL MALEATE [Concomitant]
     Dosage: 5 MG, DAILY

REACTIONS (1)
  - Hepatic failure [Recovered/Resolved]
